FAERS Safety Report 7787008-3 (Version None)
Quarter: 2011Q3

REPORT INFORMATION
  Report Type: 
  Country: None (occurrence: None)
  Receive Date: 20110929
  Receipt Date: 20110920
  Transmission Date: 20111222
  Serious: Yes (Hospitalization)
  Sender: FDA-Public Use
  Company Number: US-US-EMD SERONO, INC.-7080273

PATIENT
  Sex: Female

DRUGS (6)
  1. REBIF [Suspect]
     Indication: RELAPSING-REMITTING MULTIPLE SCLEROSIS
     Route: 058
     Dates: start: 20110613, end: 20110920
  2. REBIF [Suspect]
     Route: 058
     Dates: start: 20110920
  3. MORPHINE [Concomitant]
     Indication: TRIGEMINAL NEURALGIA
  4. WELLBUTRIN [Concomitant]
     Indication: DEPRESSION
  5. METOPROLOL TARTRATE [Concomitant]
     Indication: HYPERTENSION
  6. ZOFRAN [Concomitant]
     Indication: NAUSEA

REACTIONS (5)
  - URINE COLOUR ABNORMAL [None]
  - INJECTION SITE PAIN [None]
  - DIVERTICULITIS [None]
  - WEIGHT DECREASED [None]
  - INJECTION SITE HAEMATOMA [None]
